FAERS Safety Report 6291425-0 (Version None)
Quarter: 2009Q3

REPORT INFORMATION
  Report Type: 
  Country: None (occurrence: None)
  Receive Date: 20090730
  Receipt Date: 20090717
  Transmission Date: 20100115
  Serious: Yes (Other)
  Sender: FDA-Public Use
  Company Number: US-MYLANLABS-2009S1012692

PATIENT
  Age: 16 Year
  Sex: Female

DRUGS (2)
  1. RISPERIDONE [Suspect]
     Indication: MOOD SWINGS
     Route: 048
  2. RISPERIDONE [Suspect]
     Indication: IMPULSE-CONTROL DISORDER
     Route: 048

REACTIONS (2)
  - DEPRESSION [None]
  - PSYCHOTIC DISORDER [None]
